FAERS Safety Report 6983420-0 (Version None)
Quarter: 2010Q3

REPORT INFORMATION
  Report Type: 
  Country: None (occurrence: None)
  Receive Date: 20100914
  Receipt Date: 20100914
  Transmission Date: 20110219
  Serious: No
  Sender: FDA-Public Use
  Company Number: None

PATIENT
  Age: 47 Year
  Sex: Male
  Weight: 127 kg

DRUGS (1)
  1. CEFTRIAXONE [Suspect]
     Dosage: 1 GM ONCE IV
     Route: 042
     Dates: start: 20100704, end: 20100704

REACTIONS (2)
  - PRURITUS [None]
  - URTICARIA [None]
